FAERS Safety Report 5622554-X (Version None)
Quarter: 2008Q1

REPORT INFORMATION
  Report Type: 
  Country: None (occurrence: None)
  Receive Date: 20080114
  Receipt Date: 20071023
  Transmission Date: 20080703
  Serious: Yes (Life-Threatening)
  Sender: FDA-Public Use
  Company Number: A03200706124

PATIENT
  Age: 63 Year
  Sex: Male
  Weight: 82.0103 kg

DRUGS (7)
  1. PLAVIX [Suspect]
     Dosage: ORAL
     Route: 048
     Dates: start: 20070901
  2. ANGIOMAX [Suspect]
     Indication: CORONARY ARTERY BYPASS
     Dosage: 1.5 MG/KG, ONCE - INTRAVENOUS BOLUS
     Route: 040
     Dates: start: 20070921, end: 20070921
  3. ANGIOMAX [Suspect]
     Indication: MITRAL VALVE REPLACEMENT
     Dosage: 1.5 MG/KG, ONCE - INTRAVENOUS BOLUS
     Route: 040
     Dates: start: 20070921, end: 20070921
  4. ANGIOMAX [Suspect]
     Indication: CORONARY ARTERY BYPASS
     Dosage: 2.5 MG/KG PER HOUR - INTRAVENOUS NOS
     Route: 042
     Dates: start: 20070921, end: 20070921
  5. ANGIOMAX [Suspect]
     Indication: MITRAL VALVE REPLACEMENT
     Dosage: 2.5 MG/KG PER HOUR - INTRAVENOUS NOS
     Route: 042
     Dates: start: 20070921, end: 20070921
  6. ANGIOMAX [Suspect]
     Indication: CORONARY ARTERY BYPASS
     Dosage: 50 MG ONCE - INTRAVENOUS BOLUS
     Route: 040
     Dates: start: 20070921, end: 20070921
  7. ANGIOMAX [Suspect]
     Indication: MITRAL VALVE REPLACEMENT
     Dosage: 50 MG ONCE - INTRAVENOUS BOLUS
     Route: 040
     Dates: start: 20070921, end: 20070921

REACTIONS (2)
  - COAGULATION TIME PROLONGED [None]
  - POST PROCEDURAL HAEMORRHAGE [None]
